FAERS Safety Report 16810777 (Version 1)
Quarter: 2019Q3

REPORT INFORMATION
  Report Type: Spontaneous
  Country: JP (occurrence: JP)
  Receive Date: 20190916
  Receipt Date: 20190916
  Transmission Date: 20191005
  Serious: Yes (Other)
  Sender: FDA-Public Use
  Company Number: JP-PFIZER INC-2019390321

PATIENT
  Age: 8 Decade
  Sex: Male

DRUGS (1)
  1. MEDROL [Suspect]
     Active Substance: METHYLPREDNISOLONE
     Dosage: UNK
     Route: 048

REACTIONS (4)
  - Haemorrhage subcutaneous [Unknown]
  - Ecchymosis [Unknown]
  - Hypokalaemia [Unknown]
  - Alopecia [Unknown]
